FAERS Safety Report 6185964-0 (Version None)
Quarter: 2009Q2

REPORT INFORMATION
  Report Type: 
  Country: None (occurrence: None)
  Receive Date: 20090507
  Receipt Date: 20090501
  Transmission Date: 20091009
  Serious: Yes (Death)
  Sender: FDA-Public Use
  Company Number: 2009US001284

PATIENT
  Age: 86 Year
  Sex: Male
  Weight: 81.6 kg

DRUGS (10)
  1. LEXISCAN [Suspect]
     Indication: SCAN MYOCARDIAL PERFUSION
     Dosage: IV NOS
     Route: 042
     Dates: start: 20090423, end: 20090423
  2. CARBIDOPA/LEVODOPA (CARBIDOPA) [Concomitant]
  3. HEPARIN [Concomitant]
  4. NEXIUM [Concomitant]
  5. ZOCOR [Concomitant]
  6. ASPIRIN [Concomitant]
  7. METOPROLOL TARTRATE [Concomitant]
  8. LISINOPRIL [Concomitant]
  9. MORPHINE [Concomitant]
  10. TAMSULOSIN HCL [Concomitant]

REACTIONS (1)
  - CARDIAC ARREST [None]
